FAERS Safety Report 6544356-2 (Version None)
Quarter: 2010Q1

REPORT INFORMATION
  Report Type: 
  Country: None (occurrence: None)
  Receive Date: 20100120
  Receipt Date: 20100120
  Transmission Date: 20100710
  Serious: Yes (Other)
  Sender: FDA-Public Use
  Company Number: None

PATIENT
  Age: 60 Year
  Sex: Female
  Weight: 58.514 kg

DRUGS (1)
  1. CIPROFLOXACIN HYDROCHLORIDE [Suspect]
     Indication: SINUS CONGESTION
     Dosage: 500 MG 2X A DAY PO
     Route: 048
     Dates: start: 20100106, end: 20100108

REACTIONS (2)
  - ANOSMIA [None]
  - PRURITUS [None]
